FAERS Safety Report 4534228-7 (Version None)
Quarter: 2004Q4

REPORT INFORMATION
  Report Type: 
  Country: None (occurrence: None)
  Receive Date: 20041221
  Receipt Date: 20041221
  Transmission Date: 20050328
  Serious: No
  Sender: FDA-Public Use
  Company Number: None

PATIENT
  Age: 55 Year
  Sex: Male
  Weight: 93.441 kg

DRUGS (6)
  1. LISINOPRIL [Suspect]
     Indication: HYPERTENSION
     Dosage: 10MG   DAILY   ORAL
     Route: 048
     Dates: start: 20041019, end: 20041124
  2. FELODIPINE [Concomitant]
  3. QUETIAPINE [Concomitant]
  4. SERTRALINE HCL [Concomitant]
  5. SIMVASTATIN [Concomitant]
  6. IBUPROFEN [Concomitant]

REACTIONS (1)
  - ARTHRALGIA [None]
